FAERS Safety Report 4949762-5 (Version None)
Quarter: 2006Q1

REPORT INFORMATION
  Report Type: 
  Country: None (occurrence: None)
  Receive Date: 20060321
  Receipt Date: 20060201
  Transmission Date: 20060701
  Serious: Yes (Death, Life-Threatening, Hospitalization)
  Sender: FDA-Public Use
  Company Number: DE-MERCK-0602DEU00008

PATIENT
  Age: 38 Year
  Sex: Male

DRUGS (4)
  1. VIOXX [Suspect]
     Indication: PAIN
     Route: 048
     Dates: start: 20020724, end: 20021101
  2. VIOXX [Suspect]
     Route: 048
     Dates: start: 20020724, end: 20021101
  3. VIOXX [Suspect]
     Indication: FRACTURE MALUNION
     Route: 048
     Dates: start: 20020724, end: 20021101
  4. VIOXX [Suspect]
     Route: 048
     Dates: start: 20020724, end: 20021101

REACTIONS (3)
  - ANAEMIA [None]
  - BONE DISORDER [None]
  - MYOCARDIAL INFARCTION [None]
